FAERS Safety Report 6917289-7 (Version None)
Quarter: 2010Q3

REPORT INFORMATION
  Report Type: 
  Country: None (occurrence: None)
  Receive Date: 20100805
  Receipt Date: 20100730
  Transmission Date: 20110219
  Serious: Yes (Hospitalization)
  Sender: FDA-Public Use
  Company Number: MSTR-NO-0908S-0181

PATIENT
  Age: 64 Year
  Sex: Female
  Weight: 37.1 kg

DRUGS (1)
  1. METASTRON [Suspect]
     Indication: METASTATIC PAIN
     Dosage: 74 MBQ, SINGLE DOSE, I.V.
     Route: 042
     Dates: start: 20090120, end: 20090120

REACTIONS (3)
  - ANAEMIA [None]
  - BREAST CANCER FEMALE [None]
  - MALIGNANT NEOPLASM PROGRESSION [None]
